FAERS Safety Report 5432157-8 (Version None)
Quarter: 2007Q3

REPORT INFORMATION
  Report Type: 
  Country: None (occurrence: None)
  Receive Date: 20070830
  Receipt Date: 20070822
  Transmission Date: 20080115
  Serious: Yes (Hospitalization)
  Sender: FDA-Public Use
  Company Number: RU-MERCK-0708RUS00006

PATIENT
  Age: 64 Year
  Sex: Male

DRUGS (2)
  1. ZOCOR [Suspect]
     Indication: MYOCARDIAL ISCHAEMIA
     Route: 048
  2. ZOCOR [Suspect]
     Indication: HYPERTENSION
     Route: 048

REACTIONS (1)
  - HIP FRACTURE [None]
